FAERS Safety Report 14162221 (Version 3)
Quarter: 2019Q2

REPORT INFORMATION
  Report Type: Spontaneous
  Country: US (occurrence: US)
  Receive Date: 20171106
  Receipt Date: 20190403
  Transmission Date: 20190711
  Serious: No
  Sender: FDA-Public Use
  Company Number: US-ASTRAZENECA-2017SF12064

PATIENT
  Age: 54 Year
  Sex: Female
  Weight: 70.8 kg

DRUGS (2)
  1. BYDUREON [Suspect]
     Active Substance: EXENATIDE
     Indication: TYPE 2 DIABETES MELLITUS
     Route: 058
     Dates: start: 2017
  2. GABAPENTIN. [Suspect]
     Active Substance: GABAPENTIN
     Route: 065

REACTIONS (14)
  - Injection site mass [Unknown]
  - Injection site extravasation [Unknown]
  - Device issue [Unknown]
  - Injection site haemorrhage [Unknown]
  - Memory impairment [Unknown]
  - Weight decreased [Unknown]
  - Injection site pain [Unknown]
  - Feeling abnormal [Unknown]
  - Pain in extremity [Unknown]
  - Type 2 diabetes mellitus [Unknown]
  - Crying [Unknown]
  - Injection site bruising [Unknown]
  - Neuropathy peripheral [Unknown]
  - Injection site pruritus [Unknown]
